FAERS Safety Report 9571313 (Version 1)
Quarter: 2013Q1

REPORT INFORMATION
  Report Type: Spontaneous
  Country: US (occurrence: None)
  Receive Date: 20120510
  Receipt Date: 20120510
  Transmission Date: 20140127
  Serious: Yes (Other)
  Sender: FDA-Public Use
  Company Number: PHEH2008US07308

PATIENT
  Age: 28 Year
  Sex: Female

DRUGS (1)
  1. ZELNORM [Suspect]
     Dates: start: 20050605

REACTIONS (13)
  - Supraventricular tachycardia [None]
  - Palpitations [None]
  - Hypertension [None]
  - Loss of consciousness [None]
  - Mental disorder [None]
  - Emotional disorder [None]
  - Injury [None]
  - Pain [None]
  - Grief reaction [None]
  - Traumatic shock [None]
  - Emotional distress [None]
  - Anxiety [None]
  - Impaired work ability [None]
